FAERS Safety Report 12571976 (Version 3)
Quarter: 2016Q4

REPORT INFORMATION
  Report Type: Spontaneous
  Country: US (occurrence: US)
  Receive Date: 20160719
  Receipt Date: 20161007
  Transmission Date: 20170207
  Serious: No
  Sender: FDA-Public Use
  Company Number: US-ALKERMES INC.-ALK-2016-001726

PATIENT
  Age: 39 Year
  Sex: Female
  Weight: 59.86 kg

DRUGS (2)
  1. ARISTADA [Suspect]
     Active Substance: ARIPIPRAZOLE LAUROXIL
     Indication: MENTAL DISORDER
     Dosage: 662 MG, Q6WK
     Route: 030
     Dates: start: 20160512
  2. ARISTADA [Suspect]
     Active Substance: ARIPIPRAZOLE LAUROXIL
     Indication: SCHIZOPHRENIA

REACTIONS (5)
  - Blindness transient [Unknown]
  - Weight decreased [Unknown]
  - Weight increased [Recovered/Resolved]
  - Auditory disorder [Unknown]
  - Anxiety [Unknown]

NARRATIVE: CASE EVENT DATE: 2016
